FAERS Safety Report 14469721 (Version 1)
Quarter: 2018Q1

REPORT INFORMATION
  Report Type: Report from Study
  Country: US (occurrence: US)
  Receive Date: 20180131
  Receipt Date: 20180131
  Transmission Date: 20180509
  Serious: Yes (Hospitalization, Other)
  Sender: FDA-Public Use
  Company Number: US-JNJFOC-20170513741

PATIENT
  Age: 83 Year
  Sex: Male

DRUGS (15)
  1. SOTALOL. [Concomitant]
     Active Substance: SOTALOL
  2. IMBRUVICA [Suspect]
     Active Substance: IBRUTINIB
     Indication: CHRONIC LYMPHOCYTIC LEUKAEMIA
     Route: 048
     Dates: start: 201705
  3. IMBRUVICA [Suspect]
     Active Substance: IBRUTINIB
     Indication: CHRONIC LYMPHOCYTIC LEUKAEMIA
     Route: 048
     Dates: start: 20161115
  4. ELIQUIS [Concomitant]
     Active Substance: APIXABAN
  5. ISOSORBIDE MONONITRATE. [Concomitant]
     Active Substance: ISOSORBIDE MONONITRATE
  6. TESTOSTERONE ENANTHATE. [Concomitant]
     Active Substance: TESTOSTERONE ENANTHATE
     Route: 030
  7. IMBRUVICA [Suspect]
     Active Substance: IBRUTINIB
     Indication: CHRONIC LYMPHOCYTIC LEUKAEMIA
     Route: 048
  8. FUROSEMIDE. [Concomitant]
     Active Substance: FUROSEMIDE
  9. ASPIRIN. [Concomitant]
     Active Substance: ASPIRIN
  10. METOPROLOL. [Concomitant]
     Active Substance: METOPROLOL
  11. ATORVASTATIN [Concomitant]
     Active Substance: ATORVASTATIN
  12. PLAVIX [Concomitant]
     Active Substance: CLOPIDOGREL BISULFATE
  13. LEVOTHYROXINE. [Concomitant]
     Active Substance: LEVOTHYROXINE
  14. IMBRUVICA [Suspect]
     Active Substance: IBRUTINIB
     Indication: CHRONIC LYMPHOCYTIC LEUKAEMIA
     Route: 048
     Dates: start: 20150602, end: 20160503
  15. BALSALAZIDE [Concomitant]
     Active Substance: BALSALAZIDE

REACTIONS (11)
  - Respiratory failure [Unknown]
  - Atrial fibrillation [Unknown]
  - Muscle atrophy [Unknown]
  - Pulmonary hypertension [Unknown]
  - Cardiac failure congestive [Unknown]
  - Bronchiolitis [Unknown]
  - Pneumonia [Unknown]
  - Lymphadenopathy [Unknown]
  - Dyspnoea [Recovering/Resolving]
  - Muscular weakness [Unknown]
  - Bronchitis [Unknown]

NARRATIVE: CASE EVENT DATE: 201703
